FAERS Safety Report 7514899-3 (Version None)
Quarter: 2011Q2

REPORT INFORMATION
  Report Type: 
  Country: None (occurrence: None)
  Receive Date: 20110601
  Receipt Date: 20110517
  Transmission Date: 20111010
  Serious: Yes (Other)
  Sender: FDA-Public Use
  Company Number: CA-JNJFOC-20100902765

PATIENT
  Sex: Female
  Weight: 75 kg

DRUGS (7)
  1. FOLIC ACID [Concomitant]
  2. REMICADE [Suspect]
     Dosage: 13TH INFUSION
     Route: 042
     Dates: start: 20100907
  3. METHOTREXATE [Concomitant]
  4. PANTOPRAZOLE [Concomitant]
  5. CELEBREX [Concomitant]
  6. REMICADE [Suspect]
     Indication: PSORIASIS
     Dosage: 11 INFUSIONS ON UNSPECIFIED DATES
     Route: 042
  7. REMICADE [Suspect]
     Dosage: 12TH INFUSION
     Route: 042
     Dates: start: 20100712

REACTIONS (1)
  - MALIGNANT MELANOMA [None]
